FAERS Safety Report 10083248 (Version 1)
Quarter: 2014Q2

REPORT INFORMATION
  Report Type: Spontaneous
  Country: CA (occurrence: CA)
  Receive Date: 20140417
  Receipt Date: 20140417
  Transmission Date: 20141212
  Serious: Yes (Hospitalization)
  Sender: FDA-Public Use
  Company Number: CA-ROCHE-1385175

PATIENT
  Age: 46 Year
  Sex: Male

DRUGS (6)
  1. XOLAIR [Suspect]
     Indication: ASTHMA
     Route: 058
     Dates: start: 20100308
  2. SYMBICORT [Concomitant]
  3. ALVESCO [Concomitant]
  4. AVAMYS [Concomitant]
  5. VENTOLIN [Concomitant]
  6. SINGULAIR [Concomitant]

REACTIONS (2)
  - Pneumonia [Unknown]
  - Influenza [Unknown]
